FAERS Safety Report 16987985 (Version 1)
Quarter: 2019Q4

REPORT INFORMATION
  Report Type: Report from Study
  Country: CA (occurrence: CA)
  Receive Date: 20191104
  Receipt Date: 20191104
  Transmission Date: 20200122
  Serious: Yes (Other)
  Sender: FDA-Public Use
  Company Number: CA-ORION CORPORATION ORION PHARMA-TREX2019-5014

PATIENT
  Age: 56 Year
  Sex: Female

DRUGS (9)
  1. CICLOSPORIN [Suspect]
     Active Substance: CYCLOSPORINE
     Indication: PRODUCT USED FOR UNKNOWN INDICATION
     Route: 065
  2. BETAMETHASONE DIPROPIONATE/CALCIPOTRIOL [Concomitant]
     Route: 065
  3. COSENTYX [Suspect]
     Active Substance: SECUKINUMAB
     Indication: PSORIASIS
     Route: 058
  4. COSENTYX [Suspect]
     Active Substance: SECUKINUMAB
     Route: 058
  5. ACITRETIN. [Concomitant]
     Active Substance: ACITRETIN
     Route: 065
  6. COSENTYX [Suspect]
     Active Substance: SECUKINUMAB
     Route: 058
  7. COSENTYX [Suspect]
     Active Substance: SECUKINUMAB
     Route: 058
  8. METHOTREXATE (TRADE NAME UNKNOWN) [Suspect]
     Active Substance: METHOTREXATE
     Indication: PRODUCT USED FOR UNKNOWN INDICATION
     Route: 065
  9. COSENTYX [Suspect]
     Active Substance: SECUKINUMAB
     Route: 058

REACTIONS (9)
  - Urticaria [Not Recovered/Not Resolved]
  - Pharyngitis streptococcal [Not Recovered/Not Resolved]
  - Lower respiratory tract infection [Not Recovered/Not Resolved]
  - Pulmonary congestion [Not Recovered/Not Resolved]
  - Psoriasis [Not Recovered/Not Resolved]
  - Influenza [Not Recovered/Not Resolved]
  - Wheezing [Not Recovered/Not Resolved]
  - Nasopharyngitis [Not Recovered/Not Resolved]
  - Skin infection [Not Recovered/Not Resolved]
